FAERS Safety Report 18684313 (Version 1)
Quarter: 2020Q4

REPORT INFORMATION
  Report Type: Spontaneous
  Country: US (occurrence: US)
  Receive Date: 20201230
  Receipt Date: 20201230
  Transmission Date: 20210114
  Serious: No
  Sender: FDA-Public Use
  Company Number: US-PFIZER INC-2016603453

PATIENT
  Age: 70 Year
  Sex: Female
  Weight: 72.57 kg

DRUGS (3)
  1. PREMPRO [Suspect]
     Active Substance: ESTROGENS, CONJUGATED\MEDROXYPROGESTERONE ACETATE
     Indication: HORMONE LEVEL ABNORMAL
  2. PREMPRO [Suspect]
     Active Substance: ESTROGENS, CONJUGATED\MEDROXYPROGESTERONE ACETATE
     Indication: HORMONE THERAPY
     Dosage: 1 DF, CYCLIC  (0.625MG/2.5MG; TAKE ONCE DAILY FOR 28 DAYS BY MOUTH AND OFF FOR A COUPLE OF DAYS)
     Route: 048
  3. PREMARIN [Concomitant]
     Active Substance: ESTROGENS, CONJUGATED
     Indication: HORMONE THERAPY
     Dosage: UNK

REACTIONS (2)
  - Product use issue [Unknown]
  - Off label use [Unknown]
